FAERS Safety Report 7842924-9 (Version None)
Quarter: 2011Q4

REPORT INFORMATION
  Report Type: 
  Country: None (occurrence: None)
  Receive Date: 20111025
  Receipt Date: 20111012
  Transmission Date: 20120403
  Serious: Yes (Other)
  Sender: FDA-Public Use
  Company Number: US-BAYER-2011-006930

PATIENT
  Age: 22 Year
  Sex: Female

DRUGS (7)
  1. YAZ [Suspect]
     Dosage: UNK
     Dates: start: 20070901
  2. PAROXETINE HCL [Concomitant]
     Dosage: 20 MG, UNK
     Dates: start: 20080521
  3. MELOXICAM [Concomitant]
     Dosage: 7.5 MG, UNK
     Dates: start: 20080521
  4. PROTON PUMP INHIBITORS [Concomitant]
  5. HISTA-VENT DA [Concomitant]
     Dosage: UNK
     Dates: start: 20080201
  6. ANTIEMETICS AND ANTINAUSEANTS [Concomitant]
  7. ANTIBIOTICS [Concomitant]
     Indication: URINARY TRACT INFECTION

REACTIONS (11)
  - PAIN [None]
  - CHOLECYSTECTOMY [None]
  - INFLAMMATION [None]
  - CHOLECYSTITIS CHRONIC [None]
  - EMOTIONAL DISTRESS [None]
  - INJURY [None]
  - ANXIETY [None]
  - FATIGUE [None]
  - VOMITING [None]
  - MENTAL DISORDER [None]
  - FEAR [None]
